FAERS Safety Report 7760003-6 (Version None)
Quarter: 2011Q3

REPORT INFORMATION
  Report Type: 
  Country: None (occurrence: None)
  Receive Date: 20110915
  Receipt Date: 20110902
  Transmission Date: 20111222
  Serious: Yes (Life-Threatening, Disabling, Other)
  Sender: FDA-Public Use
  Company Number: TUK2011A00129

PATIENT
  Age: 54 Year
  Sex: Male

DRUGS (7)
  1. GLICIAZIDE (GLICIAZIDE) [Concomitant]
  2. ATORVASTATIN [Concomitant]
  3. RAMIPRIL [Concomitant]
  4. ASPIRIN [Concomitant]
  5. ACTOS [Suspect]
     Indication: PRODUCT USED FOR UNKNOWN INDICATION
     Dosage: 30 MG, ORAL; 45 MG, ORAL
     Route: 048
     Dates: end: 20110823
  6. ACTOS [Suspect]
     Indication: PRODUCT USED FOR UNKNOWN INDICATION
     Dosage: 30 MG, ORAL; 45 MG, ORAL
     Route: 048
     Dates: start: 20060913
  7. METFORMIN HCL [Concomitant]

REACTIONS (1)
  - BLADDER CANCER STAGE I, WITH CANCER IN SITU [None]
